FAERS Safety Report 15839251 (Version 2)
Quarter: 2019Q2

REPORT INFORMATION
  Report Type: Report from Study
  Country: BR (occurrence: BR)
  Receive Date: 20190117
  Receipt Date: 20190515
  Transmission Date: 20190711
  Serious: Yes (Hospitalization, Other)
  Sender: FDA-Public Use
  Company Number: PHHY2019BR006456

PATIENT
  Sex: Female
  Weight: 59 kg

DRUGS (3)
  1. ACLASTA [Suspect]
     Active Substance: ZOLEDRONIC ACID
     Dosage: 1 DF, Q12MO (5 MG/100 ML)
     Route: 042
     Dates: start: 201807
  2. ACLASTA [Suspect]
     Active Substance: ZOLEDRONIC ACID
     Indication: OSTEOPOROSIS
     Dosage: 1 DF, Q12MO (5 MG/100 ML)
     Route: 042
     Dates: start: 201207
  3. RIVOTRIL [Concomitant]
     Active Substance: CLONAZEPAM
     Indication: INSOMNIA
     Route: 065

REACTIONS (19)
  - Fall [Unknown]
  - Malaise [Unknown]
  - Blood cholesterol abnormal [Recovering/Resolving]
  - Pain in extremity [Not Recovered/Not Resolved]
  - Concomitant disease aggravated [Not Recovered/Not Resolved]
  - Spinal deformity [Not Recovered/Not Resolved]
  - Drug ineffective [Recovering/Resolving]
  - Visual impairment [Unknown]
  - Aortic thrombosis [Recovering/Resolving]
  - Anxiety [Recovering/Resolving]
  - Movement disorder [Unknown]
  - Chest injury [Recovering/Resolving]
  - Pain [Recovering/Resolving]
  - Gait inability [Unknown]
  - Chest pain [Unknown]
  - Weight increased [Recovering/Resolving]
  - Rib fracture [Unknown]
  - Insomnia [Unknown]
  - Corneal disorder [Not Recovered/Not Resolved]

NARRATIVE: CASE EVENT DATE: 2012
